FAERS Safety Report 9786970 (Version 1)
Quarter: 2013Q4

REPORT INFORMATION
  Report Type: Spontaneous
  Country: GB (occurrence: GB)
  Receive Date: 20131227
  Receipt Date: 20131227
  Transmission Date: 20140711
  Serious: Yes (Hospitalization)
  Sender: FDA-Public Use
  Company Number: PHHY2013GB149916

PATIENT
  Age: 56 Year
  Sex: Male

DRUGS (6)
  1. RAMIPRIL [Suspect]
     Indication: HYPERTENSION
     Dosage: 1.25 MG, UNK
     Route: 048
     Dates: start: 20130902
  2. OMEPRAZOLE [Concomitant]
     Dosage: 20 MG, UNK
     Route: 048
  3. BISOPROLOL [Concomitant]
     Dosage: 2.5 MG, UNK
     Route: 048
  4. ATORVASTATIN [Concomitant]
     Dosage: 10 MG, UNK
     Route: 048
  5. ASPIRIN [Concomitant]
     Dosage: 75 MG, UNK
     Route: 048
  6. NITROLINGUAL [Concomitant]

REACTIONS (1)
  - Chest pain [Unknown]
